FAERS Safety Report 7831997-5 (Version None)
Quarter: 2011Q4

REPORT INFORMATION
  Report Type: 
  Country: None (occurrence: None)
  Receive Date: 20111021
  Receipt Date: 20111018
  Transmission Date: 20120403
  Serious: Yes (Hospitalization)
  Sender: FDA-Public Use
  Company Number: MY-ROCHE-781265

PATIENT
  Sex: Female

DRUGS (14)
  1. MICARDIS [Concomitant]
     Dates: start: 20110314, end: 20110512
  2. PREDNISOLONE [Concomitant]
  3. MIRCERA [Suspect]
     Dosage: LAST DOSE PRIOR TO SAE 12 MAY 2011.
     Route: 058
  4. MIRCERA [Suspect]
     Indication: NEPHROGENIC ANAEMIA
     Dosage: LAST DOSE PRIOR TO SAE: 14 FEBRUARY 2011.
     Route: 058
  5. TRAMADOL HCL [Concomitant]
  6. CALCIUM CARBONATE [Concomitant]
  7. VITAMIN B COMPLEX CAP [Concomitant]
  8. ROCALTROL [Concomitant]
  9. PRAZOSIN HCL [Concomitant]
     Dates: start: 20110530, end: 20110606
  10. MICARDIS [Concomitant]
  11. PRAZOSIN HCL [Concomitant]
  12. SIMVASTATIN [Concomitant]
  13. FOLIC ACID [Concomitant]
  14. SLOW-K [Concomitant]

REACTIONS (1)
  - HYPERTENSIVE CRISIS [None]
